FAERS Safety Report 7619936-3 (Version None)
Quarter: 2011Q3

REPORT INFORMATION
  Report Type: 
  Country: None (occurrence: None)
  Receive Date: 20110719
  Receipt Date: 20110705
  Transmission Date: 20111222
  Serious: Yes (Other)
  Sender: FDA-Public Use
  Company Number: CZ-SANOFI-AVENTIS-2011SA044387

PATIENT
  Age: 72 Year
  Sex: Male
  Weight: 78 kg

DRUGS (7)
  1. WARFARIN SODIUM [Concomitant]
     Route: 065
  2. BETAXOLOL [Concomitant]
     Route: 065
  3. DRONEDARONE HCL [Suspect]
     Indication: ATRIAL FIBRILLATION
     Route: 048
     Dates: start: 20101115
  4. VERAPAMIL [Concomitant]
     Route: 065
  5. THIAZIDES [Concomitant]
     Route: 065
  6. PERINDOPRIL ERBUMINE [Concomitant]
     Route: 065
  7. ATORVASTATIN [Concomitant]
     Route: 065

REACTIONS (1)
  - CARDIAC FAILURE [None]
